FAERS Safety Report 11623943 (Version 1)
Quarter: 2015Q4

REPORT INFORMATION
  Report Type: Spontaneous
  Country: US (occurrence: US)
  Receive Date: 20151013
  Receipt Date: 20151013
  Transmission Date: 20160304
  Serious: No
  Sender: FDA-Public Use
  Company Number: US-JNJFOC-20150906364

PATIENT
  Sex: Female

DRUGS (4)
  1. MENS ROGAINE EXTRA STRENGTH [Suspect]
     Active Substance: MINOXIDIL
     Route: 061
  2. NIOXIN SHAMPOO [Concomitant]
     Active Substance: UNSPECIFIED INGREDIENT
     Route: 065
  3. BIOTIN [Concomitant]
     Active Substance: BIOTIN
  4. MENS ROGAINE EXTRA STRENGTH [Suspect]
     Active Substance: MINOXIDIL
     Indication: ALOPECIA
     Dosage: 1/2 A CAPFUL ONCE DAILY.
     Route: 061
     Dates: start: 20150906

REACTIONS (2)
  - Wrong patient received medication [Unknown]
  - Drug prescribing error [Unknown]
